FAERS Safety Report 11536906 (Version 1)
Quarter: 2015Q3

REPORT INFORMATION
  Report Type: Spontaneous
  Country: US (occurrence: None)
  Receive Date: 20150921
  Receipt Date: 20150921
  Transmission Date: 20151125
  Serious: Yes (Hospitalization)
  Sender: FDA-Public Use
  Company Number: None

PATIENT
  Age: 46 Year
  Sex: Female
  Weight: 54.43 kg

DRUGS (4)
  1. VITAMIN D [Concomitant]
     Active Substance: CHOLECALCIFEROL
  2. MINOCYCLINE [Suspect]
     Active Substance: MINOCYCLINE\MINOCYCLINE HYDROCHLORIDE
     Indication: SKIN IRRITATION
     Route: 048
     Dates: start: 20150916, end: 20150917
  3. CALCIUM [Concomitant]
     Active Substance: CALCIUM
  4. LEVOTHYROXINE. [Concomitant]
     Active Substance: LEVOTHYROXINE

REACTIONS (10)
  - Vomiting [None]
  - Vertigo [None]
  - Paraesthesia [None]
  - Headache [None]
  - Hypoaesthesia [None]
  - Nausea [None]
  - Dehydration [None]
  - Dizziness [None]
  - Abdominal discomfort [None]
  - Confusional state [None]

NARRATIVE: CASE EVENT DATE: 20150918
